FAERS Safety Report 8481394-7 (Version None)
Quarter: 2012Q3

REPORT INFORMATION
  Report Type: 
  Country: None (occurrence: None)
  Receive Date: 20120702
  Receipt Date: 20120629
  Transmission Date: 20120928
  Serious: Yes (Other)
  Sender: FDA-Public Use
  Company Number: US-PFIZER INC-2012157073

PATIENT
  Sex: Female
  Weight: 95.238 kg

DRUGS (6)
  1. ACETAMINOPHEN [Concomitant]
     Indication: PAIN
     Dosage: UNK, AS NEEDED
  2. SUTENT [Suspect]
     Indication: THYROID CANCER
     Dosage: 50 MG, DAILY
     Route: 048
     Dates: start: 20120618
  3. FISH OIL [Concomitant]
     Indication: BLOOD CHOLESTEROL ABNORMAL
     Dosage: UNK
  4. TEGRETOL [Concomitant]
     Indication: GRAND MAL CONVULSION
     Dosage: 200 MG, 2X/DAY
  5. SUTENT [Suspect]
     Indication: RENAL CANCER METASTATIC
     Dosage: 50 MG, DAILY
     Route: 048
     Dates: end: 20120401
  6. LOVAZA [Concomitant]
     Indication: BLOOD CHOLESTEROL ABNORMAL
     Dosage: UNK

REACTIONS (2)
  - FUNGAL INFECTION [None]
  - VAGINAL INFECTION [None]
